FAERS Safety Report 8550030-3 (Version None)
Quarter: 2012Q3

REPORT INFORMATION
  Report Type: 
  Country: None (occurrence: None)
  Receive Date: 20120730
  Receipt Date: 20120716
  Transmission Date: 20120928
  Serious: Yes (Other)
  Sender: FDA-Public Use
  Company Number: DE-UCBSA-058095

PATIENT
  Age: 17 Year
  Sex: Female
  Weight: 53 kg

DRUGS (6)
  1. CLOBAZAM [Concomitant]
     Indication: EPILEPSY
  2. KEPPRA [Suspect]
     Indication: EPILEPSY
     Dates: start: 20100828, end: 20100901
  3. MIRTAZAPINE [Concomitant]
     Dosage: 15 MG NIGHTS AS NEEDED
  4. CLOBAZAM [Concomitant]
     Dosage: DOSE INCREASED
     Dates: start: 20100901
  5. LAMICTAL [Concomitant]
     Dosage: 25 MG, DOSE INCREASED BY 25 MG EVERY 10 DAYS UNTILL 50-0-50MG, THEN INCREASE BY 50 MG EVERY 10 DAYS
     Dates: start: 20100910
  6. ACYCLOVIR [Suspect]
     Indication: ENCEPHALITIS HERPES
     Dates: end: 20100101

REACTIONS (8)
  - TUBULOINTERSTITIAL NEPHRITIS [None]
  - PSYCHOMOTOR RETARDATION [None]
  - RENAL FAILURE ACUTE [None]
  - COGNITIVE DISORDER [None]
  - APHASIA [None]
  - PARTIAL SEIZURES [None]
  - GRAND MAL CONVULSION [None]
  - BLOOD CREATININE INCREASED [None]
